FAERS Safety Report 6716689-8 (Version None)
Quarter: 2010Q2

REPORT INFORMATION
  Report Type: 
  Country: None (occurrence: None)
  Receive Date: 20100510
  Receipt Date: 20100429
  Transmission Date: 20101027
  Serious: Yes (Other)
  Sender: FDA-Public Use
  Company Number: US-BIOGENIDEC-2010BI013788

PATIENT
  Sex: Male
  Weight: 2 kg

DRUGS (1)
  1. AVONEX [Suspect]
     Indication: DRUG EXPOSURE DURING PREGNANCY
     Route: 064
     Dates: start: 20080601, end: 20090701

REACTIONS (2)
  - FOETAL GROWTH RETARDATION [None]
  - HYDROCEPHALUS [None]
